FAERS Safety Report 23799444 (Version 1)
Quarter: 2024Q2

REPORT INFORMATION
  Report Type: Spontaneous
  Country: US (occurrence: None)
  Receive Date: 20240428
  Receipt Date: 20240428
  Transmission Date: 20240716
  Serious: No
  Sender: FDA-Public Use
  Company Number: None

PATIENT
  Age: 35 Year
  Sex: Female
  Weight: 123.75 kg

DRUGS (5)
  1. YUSIMRY [Suspect]
     Active Substance: ADALIMUMAB-AQVH
     Indication: Psoriasis
  2. MOUNJARO [Concomitant]
     Active Substance: TIRZEPATIDE
  3. Adderal [Concomitant]
  4. hydrocholorathiazide [Concomitant]
  5. NAPROXEN [Concomitant]

REACTIONS (5)
  - Arthralgia [None]
  - Pain in extremity [None]
  - Pain in extremity [None]
  - Arthralgia [None]
  - Arthralgia [None]

NARRATIVE: CASE EVENT DATE: 20240418
